FAERS Safety Report 19073573 (Version 1)
Quarter: 2021Q1

REPORT INFORMATION
  Report Type: Report from Study
  Country: ES (occurrence: ES)
  Receive Date: 20210330
  Receipt Date: 20210330
  Transmission Date: 20210420
  Serious: Yes (Other)
  Sender: FDA-Public Use
  Company Number: ES-ASTELLAS-2021US011058

PATIENT
  Age: 59 Year
  Sex: Male

DRUGS (11)
  1. MYCOPHENOLATE MOFETIL. [Concomitant]
     Active Substance: MYCOPHENOLATE MOFETIL
     Indication: LUNG TRANSPLANT
     Dosage: UNK UNK, UNKNOWN FREQ.
     Route: 065
  2. MICAFUNGIN. [Suspect]
     Active Substance: MICAFUNGIN SODIUM
     Indication: SCOPULARIOPSIS INFECTION
     Route: 042
  3. ANIDULAFUNGIN [Concomitant]
     Active Substance: ANIDULAFUNGIN
     Indication: TRACHEOBRONCHITIS
  4. TERBINAFINE. [Concomitant]
     Active Substance: TERBINAFINE
     Indication: TRACHEOBRONCHITIS
  5. TACROLIMUS. [Concomitant]
     Active Substance: TACROLIMUS
     Indication: LUNG TRANSPLANT
     Dosage: UNK UNK, UNKNOWN FREQ.
     Route: 065
  6. METHYLPREDNISOLONE. [Concomitant]
     Active Substance: METHYLPREDNISOLONE
     Indication: LUNG TRANSPLANT
     Dosage: UNK UNK, UNKNOWN FREQ.
     Route: 065
  7. MICAFUNGIN. [Suspect]
     Active Substance: MICAFUNGIN SODIUM
     Indication: TRACHEOBRONCHITIS
     Dosage: 50 MG, ONCE DAILY (NEBULIZED)
     Route: 065
  8. AMPHOTERICIN B, LIPOSOME [Concomitant]
     Active Substance: AMPHOTERICIN B
     Indication: ANTIFUNGAL PROPHYLAXIS
     Dosage: UNK UNK, UNKNOWN FREQ. (NEBULIZED)
     Route: 065
  9. VORICONAZOLE. [Concomitant]
     Active Substance: VORICONAZOLE
     Indication: EVIDENCE BASED TREATMENT
     Dosage: UNK UNK, UNKNOWN FREQ.
     Route: 048
  10. TERBINAFINE. [Concomitant]
     Active Substance: TERBINAFINE
     Indication: SCOPULARIOPSIS INFECTION
     Route: 048
  11. ANIDULAFUNGIN [Concomitant]
     Active Substance: ANIDULAFUNGIN
     Indication: SCOPULARIOPSIS INFECTION
     Route: 042

REACTIONS (5)
  - Product use issue [Unknown]
  - Product use in unapproved indication [Unknown]
  - Renal failure [Recovering/Resolving]
  - Wrong technique in product usage process [Unknown]
  - Anaemia [Recovering/Resolving]
